FAERS Safety Report 20015671 (Version 1)
Quarter: 2021Q4

REPORT INFORMATION
  Report Type: Spontaneous
  Country: US (occurrence: None)
  Receive Date: 20211101
  Receipt Date: 20211101
  Transmission Date: 20220303
  Serious: Yes (Death)
  Sender: FDA-Public Use
  Company Number: None

PATIENT
  Age: 50 Year
  Sex: Female
  Weight: 73.00 kg

DRUGS (5)
  1. XGEVA [Suspect]
     Active Substance: DENOSUMAB
     Indication: Breast cancer
     Dosage: FREQUENCY : MONTHLY;?
     Route: 058
     Dates: start: 20210722, end: 20211101
  2. ACETAMINOPHEN [Concomitant]
     Active Substance: ACETAMINOPHEN
  3. OMEPRAZOLE [Concomitant]
     Active Substance: OMEPRAZOLE
  4. CALCIUM\VITAMIN D [Concomitant]
     Active Substance: CALCIUM\VITAMIN D
  5. LETROZOLE [Concomitant]
     Active Substance: LETROZOLE

REACTIONS (1)
  - Death [None]

NARRATIVE: CASE EVENT DATE: 20211101
